FAERS Safety Report 15340591 (Version 8)
Quarter: 2020Q1

REPORT INFORMATION
  Report Type: Report from Study
  Country: US (occurrence: US)
  Receive Date: 20180831
  Receipt Date: 20200218
  Transmission Date: 20200409
  Serious: Yes (Death, Hospitalization)
  Sender: FDA-Public Use
  Company Number: US-ACTELION-A-US2016-135808

PATIENT
  Age: 48 Year
  Sex: Female
  Weight: 104.76 kg

DRUGS (40)
  1. OPSUMIT [Suspect]
     Active Substance: MACITENTAN
     Indication: PULMONARY ARTERIAL HYPERTENSION
     Dosage: 10 MG, QD
     Route: 048
     Dates: start: 20150710, end: 20180805
  2. UPTRAVI [Suspect]
     Active Substance: SELEXIPAG
     Dosage: 200 MCG, BID
     Route: 048
     Dates: start: 20160328
  3. UPTRAVI [Suspect]
     Active Substance: SELEXIPAG
     Dosage: 800 MCG, BID
     Route: 048
     Dates: start: 20160328
  4. DULCOLAX NOS [Concomitant]
     Active Substance: BISACODYL OR DOCUSATE SODIUM
     Dosage: UNK
     Dates: start: 20180319
  5. PANTOPRAZOLE [Concomitant]
     Active Substance: PANTOPRAZOLE
     Dosage: UNK
     Dates: start: 20180319
  6. EPINEPHRINE. [Concomitant]
     Active Substance: EPINEPHRINE
     Dosage: UNK
     Dates: start: 20180729
  7. OMEPRAZOLE. [Concomitant]
     Active Substance: OMEPRAZOLE
     Dosage: UNK
     Dates: start: 20180729
  8. CHOLECALCIFEROL [Concomitant]
     Active Substance: CHOLECALCIFEROL
     Dosage: UNK
     Dates: start: 20180319
  9. CISATRACURIUM. [Concomitant]
     Active Substance: CISATRACURIUM
     Dosage: UNK
     Dates: start: 20180729
  10. FENTANYL. [Concomitant]
     Active Substance: FENTANYL
     Dosage: UNK
     Dates: start: 20180729
  11. TREPROSTINIL. [Concomitant]
     Active Substance: TREPROSTINIL
     Dosage: UNK
     Dates: start: 20180729
  12. EPOPROSTENOL. [Concomitant]
     Active Substance: EPOPROSTENOL
     Dosage: UNK
     Dates: start: 20180729
  13. SILDENAFIL. [Concomitant]
     Active Substance: SILDENAFIL
     Dosage: 60 MG, UNK
     Dates: start: 20180319
  14. FUROSEMIDE. [Concomitant]
     Active Substance: FUROSEMIDE
     Dosage: UNK
     Dates: start: 20180319
  15. SPIRONOLACTONE. [Concomitant]
     Active Substance: SPIRONOLACTONE
     Dosage: UNK
     Dates: start: 20180319
  16. BUMETANIDE. [Concomitant]
     Active Substance: BUMETANIDE
  17. CEFEPIME [Concomitant]
     Active Substance: CEFEPIME HYDROCHLORIDE
     Dosage: UNK
     Dates: start: 20180729
  18. PROPOFOL. [Concomitant]
     Active Substance: PROPOFOL
     Dosage: UNK
     Dates: start: 20180729
  19. FLUDROCORTISONE [Concomitant]
     Active Substance: FLUDROCORTISONE
     Dosage: UNK
     Dates: start: 20180729
  20. NOREPINEPHRINE. [Concomitant]
     Active Substance: NOREPINEPHRINE
     Dosage: UNK
     Dates: start: 20180729
  21. VANCOMYCIN [Concomitant]
     Active Substance: VANCOMYCIN
     Dosage: UNK
     Dates: start: 20180729
  22. UPTRAVI [Suspect]
     Active Substance: SELEXIPAG
     Dosage: 1000 MCG, UNK
     Route: 048
     Dates: start: 20160328
  23. ESCITALOPRAM OXALATE. [Concomitant]
     Active Substance: ESCITALOPRAM OXALATE
     Dosage: UNK
     Dates: start: 20180319
  24. MAGNESIUM OXIDE. [Concomitant]
     Active Substance: MAGNESIUM OXIDE
     Dosage: UNK
     Dates: start: 20180319
  25. POTASSIUM CHLORIDE. [Concomitant]
     Active Substance: POTASSIUM CHLORIDE
     Dosage: UNK
     Dates: start: 20180319
  26. ALBUTEROL. [Concomitant]
     Active Substance: ALBUTEROL
     Dosage: UNK
     Dates: start: 20180319
  27. BICARBONATE [Concomitant]
     Active Substance: SODIUM BICARBONATE
     Dosage: UNK
     Dates: start: 20180729
  28. DIPHENHYDRAMINE. [Concomitant]
     Active Substance: DIPHENHYDRAMINE
     Dosage: UNK
     Dates: start: 20180729
  29. METRONIDAZOLE. [Concomitant]
     Active Substance: METRONIDAZOLE
     Dosage: UNK
     Dates: start: 20180729
  30. VASOPRESSIN. [Concomitant]
     Active Substance: VASOPRESSIN
     Dosage: UNK
     Dates: start: 20180729
  31. AZTREONAM. [Concomitant]
     Active Substance: AZTREONAM
     Dosage: UNK
     Dates: start: 20180729
  32. INSULIN REGULAR [Concomitant]
     Active Substance: INSULIN NOS
     Dosage: UNK
     Dates: start: 20180729
  33. MILRINONE [Concomitant]
     Active Substance: MILRINONE
     Dosage: UNK
     Dates: start: 20180729
  34. UPTRAVI [Suspect]
     Active Substance: SELEXIPAG
     Indication: PULMONARY ARTERIAL HYPERTENSION
     Dosage: 600 MCG, BID
     Route: 048
     Dates: start: 20160328
  35. GABAPENTIN. [Concomitant]
     Active Substance: GABAPENTIN
     Dosage: UNK
     Dates: start: 20180319
  36. LEVOTHYROXINE. [Concomitant]
     Active Substance: LEVOTHYROXINE
     Dosage: UNK
     Dates: start: 20180319
  37. METOLAZONE. [Concomitant]
     Active Substance: METOLAZONE
     Dosage: UNK
     Dates: start: 20180319
  38. CHLORHEXIDINE [Concomitant]
     Active Substance: CHLORHEXIDINE
     Dosage: UNK
     Dates: start: 20180729
  39. ONDANSETRON [Concomitant]
     Active Substance: ONDANSETRON
     Dosage: UNK
     Dates: start: 20180729
  40. MULTIVITAMIN [Concomitant]
     Active Substance: VITAMINS
     Dosage: UNK
     Dates: start: 20180319

REACTIONS (24)
  - Fluid overload [Not Recovered/Not Resolved]
  - Disease progression [Fatal]
  - Abdominal pain [Unknown]
  - Condition aggravated [Unknown]
  - Intra-abdominal fluid collection [Unknown]
  - Paraesthesia [Unknown]
  - Back pain [Unknown]
  - Pain in jaw [Unknown]
  - Arthralgia [Unknown]
  - Right ventricular failure [Fatal]
  - Pulmonary hypertension [Fatal]
  - Vomiting [Unknown]
  - Respiratory failure [Unknown]
  - Electrolyte imbalance [Unknown]
  - Cardiac arrest [Unknown]
  - Alanine aminotransferase increased [Unknown]
  - Blood bilirubin increased [Unknown]
  - Myalgia [Unknown]
  - Headache [Unknown]
  - Hypoxia [Unknown]
  - Dyspnoea exertional [Recovered/Resolved]
  - Weight increased [Recovered/Resolved]
  - Nausea [Unknown]
  - Aspartate aminotransferase increased [Unknown]

NARRATIVE: CASE EVENT DATE: 201801
